FAERS Safety Report 5936858-4 (Version None)
Quarter: 2008Q4

REPORT INFORMATION
  Report Type: 
  Country: None (occurrence: None)
  Receive Date: 20081031
  Receipt Date: 20081023
  Transmission Date: 20090506
  Serious: Yes (Hospitalization)
  Sender: FDA-Public Use
  Company Number: DE-RANBAXY-2008RR-18905

PATIENT
  Sex: Male
  Weight: 70 kg

DRUGS (6)
  1. IBUPROFEN [Suspect]
     Indication: BACK PAIN
     Dosage: 800 MG, QID
     Route: 048
     Dates: start: 20071025, end: 20071211
  2. IBUPROFEN [Suspect]
     Route: 048
  3. HUMALOG [Concomitant]
     Indication: TYPE 1 DIABETES MELLITUS
     Dosage: 20 IU, TID
     Route: 058
     Dates: start: 20050101
  4. HUMINSULIN [Concomitant]
     Indication: TYPE 1 DIABETES MELLITUS
     Dosage: 18 IU, QD
     Route: 058
     Dates: start: 20050101, end: 20071223
  5. ASPIRIN [Concomitant]
     Indication: MIGRAINE
     Dosage: 100 MG, QD
     Route: 048
     Dates: start: 20070207, end: 20071025
  6. ASPIRIN [Concomitant]
     Dosage: UNK MG, UNK
     Route: 048
     Dates: start: 20070207, end: 20071025

REACTIONS (1)
  - HEPATITIS ACUTE [None]
